FAERS Safety Report 9881598 (Version 1)
Quarter: 2014Q1

REPORT INFORMATION
  Report Type: Spontaneous
  Country: US (occurrence: None)
  Receive Date: 20140205
  Receipt Date: 20140205
  Transmission Date: 20141002
  Serious: No
  Sender: FDA-Public Use
  Company Number: CL-551-2014

PATIENT
  Age: 71 Year
  Sex: Male

DRUGS (13)
  1. CIPROFLOXACIN [Suspect]
     Indication: STAPHYLOCOCCAL INFECTION
     Route: 048
     Dates: start: 20130101, end: 20130103
  2. VANCOMYCIN HCL [Suspect]
     Indication: STAPHYLOCOCCAL INFECTION
     Route: 042
  3. INSULIN LISPRO [Concomitant]
  4. ORAL DIGOXIN [Concomitant]
  5. PREVISCAN [Concomitant]
  6. IPERTEN [Concomitant]
  7. BIPRETERAX [Concomitant]
  8. CRESTOR [Concomitant]
  9. RASILEZ [Concomitant]
  10. MECIR [Concomitant]
  11. ATARAX [Concomitant]
  12. LAROXYL [Concomitant]
  13. STILNOX [Concomitant]

REACTIONS (1)
  - Drug reaction with eosinophilia and systemic symptoms [None]
